FAERS Safety Report 4954729-7 (Version None)
Quarter: 2006Q1

REPORT INFORMATION
  Report Type: 
  Country: None (occurrence: None)
  Receive Date: 20060322
  Receipt Date: 20060308
  Transmission Date: 20060701
  Serious: Yes (Hospitalization)
  Sender: FDA-Public Use
  Company Number: 2006034667

PATIENT
  Age: 7 Year
  Sex: Male
  Weight: 18 kg

DRUGS (1)
  1. SOMATROPIN (SOMATROPIN) [Suspect]
     Indication: BODY HEIGHT BELOW NORMAL
     Dosage: 0.75 MG/KG/WEEKLY (WEEKLY)

REACTIONS (7)
  - CONDITION AGGRAVATED [None]
  - CONGENITAL DYSKERATOSIS [None]
  - HYPOPROTEINAEMIA [None]
  - LEUKOPLAKIA ORAL [None]
  - NAIL DYSTROPHY [None]
  - SKIN HYPERPIGMENTATION [None]
  - SKIN LESION [None]
